FAERS Safety Report 13532827 (Version 1)
Quarter: 2017Q2

REPORT INFORMATION
  Report Type: Spontaneous
  Country: NO (occurrence: NO)
  Receive Date: 20170510
  Receipt Date: 20170510
  Transmission Date: 20170830
  Serious: Yes (Hospitalization)
  Sender: FDA-Public Use
  Company Number: NO-SA-2017SA083539

PATIENT
  Age: 43 Year
  Sex: Female
  Weight: 78 kg

DRUGS (1)
  1. STILNOCT [Suspect]
     Active Substance: ZOLPIDEM TARTRATE
     Indication: SLEEP DISORDER
     Route: 065
     Dates: start: 20090214, end: 20161105

REACTIONS (29)
  - Abdominal pain [Recovering/Resolving]
  - Thinking abnormal [Unknown]
  - Fatigue [Unknown]
  - Hyperacusis [Recovering/Resolving]
  - Anxiety [Unknown]
  - Arthralgia [Recovering/Resolving]
  - Withdrawal syndrome [Recovering/Resolving]
  - Disturbance in attention [Recovering/Resolving]
  - Myalgia [Recovering/Resolving]
  - Anxiety [Recovering/Resolving]
  - Hyperhidrosis [Unknown]
  - Muscle spasms [Unknown]
  - Tremor [Unknown]
  - Photophobia [Recovering/Resolving]
  - Chills [Unknown]
  - Tinnitus [Unknown]
  - Depressed mood [Unknown]
  - Arthralgia [Recovering/Resolving]
  - Stress [Recovering/Resolving]
  - Diarrhoea [Recovering/Resolving]
  - Muscular weakness [Recovering/Resolving]
  - Panic attack [Unknown]
  - Neck pain [Recovering/Resolving]
  - Insomnia [Unknown]
  - Back pain [Recovering/Resolving]
  - Nausea [Recovering/Resolving]
  - Confusional state [Recovering/Resolving]
  - Depression [Unknown]
  - Restlessness [Recovering/Resolving]

NARRATIVE: CASE EVENT DATE: 20100512
